FAERS Safety Report 4838075-8 (Version None)
Quarter: 2005Q4

REPORT INFORMATION
  Report Type: 
  Country: None (occurrence: None)
  Receive Date: 20051128
  Receipt Date: 20051116
  Transmission Date: 20060501
  Serious: Yes (Other)
  Sender: FDA-Public Use
  Company Number: DE-JNJFOC-20051104956

PATIENT

DRUGS (17)
  1. SEMPERA [Suspect]
     Indication: DRUG USE FOR UNKNOWN INDICATION
     Route: 042
     Dates: start: 20031015, end: 20031016
  2. BUSULFEX [Concomitant]
  3. FLUDARABIN [Concomitant]
  4. MELPHALAN [Concomitant]
  5. ATG RABBIT FRESENIUS [Concomitant]
  6. AMPHOMORONAL [Concomitant]
  7. COLISLIN [Concomitant]
  8. CIPROFLAXIN [Concomitant]
  9. METRONIDAZOLE [Concomitant]
  10. ALLOPURINOL [Concomitant]
  11. URSODESOXYCHOLAT [Concomitant]
  12. DIAZEPAM [Concomitant]
  13. CORTRIM [Concomitant]
  14. CORTRIM [Concomitant]
  15. CLEXANE [Concomitant]
  16. ACYCLOVIR [Concomitant]
  17. NAVOBAN [Concomitant]

REACTIONS (3)
  - ADENOVIRUS INFECTION [None]
  - C-REACTIVE PROTEIN INCREASED [None]
  - PYREXIA [None]
